FAERS Safety Report 11282441 (Version 3)
Quarter: 2015Q3

REPORT INFORMATION
  Report Type: Spontaneous
  Country: US (occurrence: US)
  Receive Date: 20150720
  Receipt Date: 20150929
  Transmission Date: 20151125
  Serious: Yes (Other)
  Sender: FDA-Public Use
  Company Number: US-ASTRAZENECA-2015SE68531

PATIENT
  Age: 920 Month
  Sex: Female
  Weight: 78 kg

DRUGS (10)
  1. PULMICORT FLEXHALER [Suspect]
     Active Substance: BUDESONIDE
     Indication: ASTHMA
     Dosage: 180 MCG TWO PUFFS TWICE DAILY
     Route: 055
     Dates: start: 20150616
  2. PULMICORT FLEXHALER [Suspect]
     Active Substance: BUDESONIDE
     Indication: ASTHMA
     Dosage: 180 MCG TWO PUFFS TWICE DAILY
     Route: 055
     Dates: start: 201411
  3. LOSARTAN. [Concomitant]
     Active Substance: LOSARTAN
     Indication: BLOOD PRESSURE ABNORMAL
     Route: 048
  4. PULMICORT FLEXHALER [Suspect]
     Active Substance: BUDESONIDE
     Indication: ASTHMA
     Dosage: 180 MCG TWO PUFFS TWICE DAILY
     Route: 055
     Dates: start: 20150823
  5. FLUTICASONE [Concomitant]
     Active Substance: FLUTICASONE\FLUTICASONE PROPIONATE
     Indication: NASAL CONGESTION
     Dosage: 2 SPRAYS IN EACH NOSTRIL AT NIGHT
     Route: 045
     Dates: start: 201411
  6. AMLODIPINE [Concomitant]
     Active Substance: AMLODIPINE BESYLATE
     Indication: BLOOD PRESSURE ABNORMAL
     Route: 048
  7. FLUTICASONE [Concomitant]
     Active Substance: FLUTICASONE\FLUTICASONE PROPIONATE
     Indication: ASTHMA
     Dosage: 2 SPRAYS IN EACH NOSTRIL AT NIGHT
     Route: 045
     Dates: start: 201411
  8. FLUTICASONE [Concomitant]
     Active Substance: FLUTICASONE\FLUTICASONE PROPIONATE
     Indication: SLEEP DISORDER
     Dosage: 2 SPRAYS IN EACH NOSTRIL AT NIGHT
     Route: 045
     Dates: start: 201411
  9. BIOTIN [Concomitant]
     Active Substance: BIOTIN
     Indication: VITAMIN SUPPLEMENTATION
     Route: 048
  10. METHYLSULFONYLMETHANE [Concomitant]
     Active Substance: DIMETHYL SULFONE
     Indication: ARTHROPATHY
     Route: 048

REACTIONS (6)
  - Intentional product misuse [Unknown]
  - Alopecia [Not Recovered/Not Resolved]
  - Cataract [Unknown]
  - Cough [Unknown]
  - Drug dose omission [Unknown]
  - Device issue [Unknown]

NARRATIVE: CASE EVENT DATE: 201501
